FAERS Safety Report 7630765-7 (Version None)
Quarter: 2011Q3

REPORT INFORMATION
  Report Type: 
  Country: None (occurrence: None)
  Receive Date: 20110722
  Receipt Date: 20110713
  Transmission Date: 20111222
  Serious: Yes (Death)
  Sender: FDA-Public Use
  Company Number: GB-GENENTECH-321596

PATIENT
  Age: 79 Year
  Sex: Female

DRUGS (3)
  1. RITUXIMAB [Suspect]
     Indication: RHEUMATOID ARTHRITIS
     Dosage: 1 G, UNK
     Route: 042
     Dates: start: 20110311, end: 20110311
  2. RITUXIMAB [Suspect]
     Dosage: 1 G, UNK
     Route: 042
     Dates: start: 20110325, end: 20110325
  3. METHOTREXATE [Concomitant]
     Indication: PRODUCT USED FOR UNKNOWN INDICATION
     Dosage: UNK
     Route: 048
     Dates: start: 20090801

REACTIONS (1)
  - DEATH [None]
